FAERS Safety Report 6924369-9 (Version None)
Quarter: 2010Q3

REPORT INFORMATION
  Report Type: 
  Country: None (occurrence: None)
  Receive Date: 20100811
  Receipt Date: 20100811
  Transmission Date: 20110219
  Serious: Yes (Death, Life-Threatening, Hospitalization, Disabling)
  Sender: FDA-Public Use
  Company Number: None

PATIENT
  Age: 83 Year
  Sex: Male
  Weight: 79.3795 kg

DRUGS (13)
  1. LOVENOX [Suspect]
     Indication: ACUTE MYOCARDIAL INFARCTION
     Dosage: 85MG 1X SC ; 75MG 2X/DAY SC
     Route: 058
     Dates: start: 20100501, end: 20100506
  2. LOVENOX [Suspect]
     Indication: ACUTE MYOCARDIAL INFARCTION
     Dosage: 85MG 1X SC ; 75MG 2X/DAY SC
     Route: 058
     Dates: start: 20100430
  3. ASPIRIN [Suspect]
     Indication: SEPTIC SHOCK
     Dosage: 325MG ONE TIME/DAY
     Dates: start: 20100430, end: 20100506
  4. SIMVASTATIN [Concomitant]
  5. OMEPRAZOLE [Concomitant]
  6. CARVEDILOL [Concomitant]
  7. INSULIN INJ (NOVOLOG) [Concomitant]
  8. CEFTAZIDIME [Concomitant]
  9. VANCOMYCIN [Concomitant]
  10. DOCUSATE SOD [Concomitant]
  11. MAGNESIUM HYD. [Concomitant]
  12. MAGNESIUM ALUMINUM [Concomitant]
  13. ACETAMINOPHEN [Concomitant]

REACTIONS (1)
  - RETROPERITONEAL HAEMORRHAGE [None]
